FAERS Safety Report 9310223 (Version 1)
Quarter: 2013Q2

REPORT INFORMATION
  Report Type: Spontaneous
  Country: CH (occurrence: CH)
  Receive Date: 20130527
  Receipt Date: 20130527
  Transmission Date: 20140414
  Serious: Yes (Hospitalization)
  Sender: FDA-Public Use
  Company Number: PHHY2013CH051697

PATIENT
  Age: 67 Year
  Sex: Female

DRUGS (6)
  1. TEGRETOL CR [Suspect]
     Dosage: 400, MG, BID
     Route: 048
  2. CONVULEX CAPSULE [Suspect]
     Dosage: 300 MG, BID
     Route: 048
  3. BELOC ZOK [Concomitant]
     Dosage: 50 MG, BID
     Route: 048
  4. AMLODIPINE [Concomitant]
     Route: 048
  5. TORASEM [Concomitant]
     Route: 048
  6. SORTIS [Concomitant]
     Route: 048

REACTIONS (1)
  - Pancytopenia [Not Recovered/Not Resolved]
